FAERS Safety Report 21451668 (Version 4)
Quarter: 2022Q4

REPORT INFORMATION
  Report Type: Spontaneous
  Country: DE (occurrence: DE)
  Receive Date: 20221013
  Receipt Date: 20221130
  Transmission Date: 20230113
  Serious: Yes (Other)
  Sender: FDA-Public Use
  Company Number: None

PATIENT
  Age: 50 Year
  Sex: Female
  Weight: 55 kg

DRUGS (3)
  1. CIPROFLOXACIN [Suspect]
     Active Substance: CIPROFLOXACIN
     Indication: Acute sinusitis
     Dosage: 400 MG, TID
     Route: 042
     Dates: start: 20220725, end: 20220728
  2. SINUPRET [ASCORBIC ACID;GENTIANA LUTEA ROOT;PRIMULA SPP. FLOWER;RU [Concomitant]
     Indication: Acute sinusitis
     Dosage: UNK
     Dates: start: 2022
  3. PREDNISONE [Concomitant]
     Active Substance: PREDNISONE
     Indication: Asthma
     Dosage: DAILY DOSE 20 MG
     Dates: start: 20220601, end: 20220610

REACTIONS (16)
  - Cellulitis [Recovering/Resolving]
  - Pain in extremity [Recovering/Resolving]
  - Phlebitis [Recovering/Resolving]
  - Paraesthesia [Recovering/Resolving]
  - Tenosynovitis [Recovering/Resolving]
  - Tendon pain [Not Recovered/Not Resolved]
  - Erythema [Recovering/Resolving]
  - Pain in extremity [Recovering/Resolving]
  - Skin burning sensation [Recovering/Resolving]
  - Depression [Unknown]
  - Abdominal pain upper [Unknown]
  - Headache [Unknown]
  - Sick leave [Unknown]
  - Tendon disorder [Recovering/Resolving]
  - Pain in extremity [Recovering/Resolving]
  - Tendon discomfort [Recovering/Resolving]

NARRATIVE: CASE EVENT DATE: 20220101
